FAERS Safety Report 9570944 (Version 1)
Quarter: 2013Q3

REPORT INFORMATION
  Report Type: Spontaneous
  Country: US (occurrence: None)
  Receive Date: 20130927
  Receipt Date: 20130927
  Transmission Date: 20140515
  Serious: No
  Sender: FDA-Public Use
  Company Number: None

PATIENT
  Age: 71 None
  Sex: Male

DRUGS (1)
  1. HUMIRA [Suspect]
     Indication: ILL-DEFINED DISORDER
     Route: 058
     Dates: start: 201306, end: 201308

REACTIONS (3)
  - Abdominal discomfort [None]
  - Epigastric discomfort [None]
  - Helicobacter gastritis [None]
